FAERS Safety Report 6177857-X (Version None)
Quarter: 2009Q2

REPORT INFORMATION
  Report Type: 
  Country: None (occurrence: None)
  Receive Date: 20090504
  Receipt Date: 20090423
  Transmission Date: 20091009
  Serious: Yes (Death, Other)
  Sender: FDA-Public Use
  Company Number: JP-BAXTER-2009BH007277

PATIENT
  Age: 77 Year
  Sex: Male

DRUGS (16)
  1. ENDOXAN BAXTER [Suspect]
     Indication: NON-HODGKIN'S LYMPHOMA
     Route: 065
     Dates: start: 20090115, end: 20090303
  2. PREDONINE [Suspect]
     Indication: NON-HODGKIN'S LYMPHOMA
     Route: 065
     Dates: start: 20090115, end: 20090303
  3. RITUXAN [Suspect]
     Indication: NON-HODGKIN'S LYMPHOMA
     Route: 065
     Dates: start: 20090115, end: 20090303
  4. DOXORUBICIN HCL [Suspect]
     Indication: NON-HODGKIN'S LYMPHOMA
     Route: 065
     Dates: start: 20090115, end: 20090303
  5. VINCRISTINE SULFATE [Suspect]
     Indication: NON-HODGKIN'S LYMPHOMA
     Route: 065
     Dates: start: 20090115, end: 20090303
  6. DORIPENEM HYDRATE [Concomitant]
     Indication: DRUG USE FOR UNKNOWN INDICATION
     Route: 041
     Dates: start: 20090313, end: 20090318
  7. OMEPRAL [Concomitant]
     Indication: GASTRITIS PROPHYLAXIS
     Route: 048
  8. MUCOSTA [Concomitant]
     Indication: GASTRITIS PROPHYLAXIS
     Route: 048
  9. MAGLAX [Concomitant]
     Indication: CONSTIPATION PROPHYLAXIS
     Route: 048
  10. BLOPRESS [Concomitant]
     Indication: HYPERTENSION
     Route: 048
  11. DOGMATYL [Concomitant]
     Indication: GASTRITIS PROPHYLAXIS
     Route: 048
     Dates: start: 20090309
  12. SOLDEM 3A [Concomitant]
     Indication: FLUID REPLACEMENT
     Route: 042
  13. LACTEC G [Concomitant]
     Indication: FLUID REPLACEMENT
     Route: 042
  14. BFLUID [Concomitant]
     Indication: FLUID REPLACEMENT
     Route: 042
  15. VOLTAREN [Concomitant]
     Indication: ANTIPYRESIS
     Route: 048
     Dates: start: 20090312
  16. ITRIZOLE [Concomitant]
     Indication: FUNGAL INFECTION
     Route: 048
     Dates: start: 20090312

REACTIONS (4)
  - PNEUMOCYSTIS JIROVECI PNEUMONIA [None]
  - PNEUMOMEDIASTINUM [None]
  - PNEUMOTHORAX [None]
  - SUBCUTANEOUS EMPHYSEMA [None]
